FAERS Safety Report 15098577 (Version 1)
Quarter: 2018Q3

REPORT INFORMATION
  Report Type: Spontaneous
  Country: IT (occurrence: IT)
  Receive Date: 20180702
  Receipt Date: 20180702
  Transmission Date: 20181010
  Serious: Yes (Other)
  Sender: FDA-Public Use
  Company Number: IT-TEVA-2018-IT-919437

PATIENT
  Age: 65 Year
  Sex: Male

DRUGS (5)
  1. ADENURIC [Concomitant]
     Active Substance: FEBUXOSTAT
     Route: 065
  2. METHOTREXATE. [Suspect]
     Active Substance: METHOTREXATE
     Indication: RHEUMATOID ARTHRITIS
     Route: 030
     Dates: start: 20180212, end: 20180419
  3. LANSOX [Concomitant]
     Active Substance: LANSOPRAZOLE
     Route: 065
  4. DELTACORTENE [Concomitant]
     Active Substance: PREDNISONE
     Route: 062
  5. DIBASE [Concomitant]
     Active Substance: CHOLECALCIFEROL
     Route: 065

REACTIONS (1)
  - Asthmatic crisis [Recovered/Resolved]

NARRATIVE: CASE EVENT DATE: 20180419
